APPROVED DRUG PRODUCT: LOTEPREDNOL ETABONATE
Active Ingredient: LOTEPREDNOL ETABONATE
Strength: 0.38%
Dosage Form/Route: GEL;OPHTHALMIC
Application: A218087 | Product #001 | TE Code: AB
Applicant: LUPIN LTD
Approved: Jun 30, 2025 | RLD: No | RS: No | Type: RX